FAERS Safety Report 13194831 (Version 2)
Quarter: 2017Q1

REPORT INFORMATION
  Report Type: Report from Study
  Country: JP (occurrence: JP)
  Receive Date: 20170207
  Receipt Date: 20170221
  Transmission Date: 20170428
  Serious: Yes (Other)
  Sender: FDA-Public Use
  Company Number: JP-AVADEL PHARMACEUTICALS (USA), INC.-2017AVA00016

PATIENT
  Age: 80 Year
  Sex: Female
  Weight: 42.18 kg

DRUGS (8)
  1. ARGAMATE [Concomitant]
     Active Substance: CALCIUM POLYSTYRENE SULFONATE
  2. RABEPRAZOLE SODIUM. [Suspect]
     Active Substance: RABEPRAZOLE SODIUM
     Indication: PROPHYLAXIS AGAINST GASTROINTESTINAL ULCER
     Dosage: 10 MG, 1X/DAY
     Route: 048
     Dates: start: 20160121
  3. ATORVASTATIN [Concomitant]
     Active Substance: ATORVASTATIN
  4. MICARDIS [Concomitant]
     Active Substance: TELMISARTAN
  5. PLETAAL [Concomitant]
     Active Substance: CILOSTAZOL
  6. CELECOX [Concomitant]
     Active Substance: CELECOXIB
  7. BAYASPIRIN [Concomitant]
     Active Substance: ASPIRIN
     Indication: CEREBROVASCULAR DISORDER
     Dosage: 100 MG, 1X/DAY
     Route: 048
     Dates: start: 20160121
  8. FEBURIC [Concomitant]
     Active Substance: FEBUXOSTAT

REACTIONS (1)
  - Chronic myeloid leukaemia [Recovering/Resolving]

NARRATIVE: CASE EVENT DATE: 20160712
